FAERS Safety Report 18564363 (Version 10)
Quarter: 2021Q1

REPORT INFORMATION
  Report Type: Report from Study
  Country: AU (occurrence: AU)
  Receive Date: 20201201
  Receipt Date: 20210216
  Transmission Date: 20210419
  Serious: Yes (Death, Hospitalization)
  Sender: FDA-Public Use
  Company Number: AU-EISAI MEDICAL RESEARCH-EC-2020-084505

PATIENT
  Age: 73 Year
  Sex: Female
  Weight: 73.2 kg

DRUGS (32)
  1. PEMBROLIZUMAB. [Suspect]
     Active Substance: PEMBROLIZUMAB
     Indication: NON-SMALL CELL LUNG CANCER METASTATIC
     Route: 041
     Dates: start: 20190717, end: 20200909
  2. PANADOL [Concomitant]
     Active Substance: ACETAMINOPHEN
     Dates: start: 201601, end: 20201018
  3. VENTOLIN [Concomitant]
     Active Substance: ALBUTEROL SULFATE
     Dates: start: 201905, end: 20201018
  4. MERSYNDOL [ACETAMINOPHEN\CAFFEINE\CODEINE\DOXYLAMINE] [Concomitant]
     Active Substance: ACETAMINOPHEN\CAFFEINE\CODEINE\DOXYLAMINE
     Dates: start: 201601
  5. GLUCOSAMINE [Concomitant]
     Active Substance: GLUCOSAMINE
     Dates: start: 200901
  6. TURMERIC [Concomitant]
     Active Substance: HERBALS\TURMERIC
     Dates: start: 201601
  7. SYMBICORT [Concomitant]
     Active Substance: BUDESONIDE\FORMOTEROL FUMARATE DIHYDRATE
     Dates: start: 201905, end: 20201018
  8. FUNGILIN [Concomitant]
     Active Substance: AMPHOTERICIN B
     Dates: start: 20190924
  9. PEMBROLIZUMAB. [Suspect]
     Active Substance: PEMBROLIZUMAB
     Route: 041
     Dates: start: 20200930, end: 20200930
  10. FEXOFENADINE [Concomitant]
     Active Substance: FEXOFENADINE HYDROCHLORIDE
     Dates: start: 201901
  11. GASTROLYTE [Concomitant]
     Active Substance: DEXTROSE\ELECTROLYTES NOS
     Dates: start: 20191216
  12. PEMETREXED. [Suspect]
     Active Substance: PEMETREXED
     Route: 041
     Dates: start: 20200930, end: 20200930
  13. MAGNESIUM ASPARTATE [Concomitant]
     Active Substance: MAGNESIUM ASPARTATE
     Dates: start: 201209, end: 20201018
  14. CARBOPLATIN. [Concomitant]
     Active Substance: CARBOPLATIN
     Dates: start: 20190717, end: 20200918
  15. ELIQUIS [Concomitant]
     Active Substance: APIXABAN
     Dates: start: 201209
  16. CHOLECALCIFEROL [Concomitant]
     Active Substance: CHOLECALCIFEROL
     Dates: start: 201301
  17. FERROGRAD C [Concomitant]
     Active Substance: ASCORBIC ACID\FERROUS SULFATE
     Dates: start: 201511
  18. VITAMINS [Concomitant]
     Active Substance: VITAMINS
     Dates: start: 200901
  19. UBIDECARENONE. [Concomitant]
     Active Substance: UBIDECARENONE
     Dates: start: 200401
  20. RULIDE [Concomitant]
     Active Substance: ROXITHROMYCIN
     Dates: start: 20200527
  21. PEMETREXED. [Suspect]
     Active Substance: PEMETREXED
     Indication: NON-SMALL CELL LUNG CANCER METASTATIC
     Route: 041
     Dates: start: 20190717, end: 20200909
  22. DIGOXIN. [Suspect]
     Active Substance: DIGOXIN
     Indication: ATRIAL FIBRILLATION
     Route: 048
     Dates: start: 201209, end: 20201019
  23. SPIRIVA [Concomitant]
     Active Substance: TIOTROPIUM BROMIDE MONOHYDRATE
     Dates: start: 201905, end: 20201018
  24. ZOLOFT [Concomitant]
     Active Substance: SERTRALINE HYDROCHLORIDE
     Dates: start: 201601
  25. VALERIAN [Concomitant]
     Active Substance: VALERIAN
     Dates: start: 201701
  26. VERAPAMIL [Concomitant]
     Active Substance: VERAPAMIL HYDROCHLORIDE
     Dates: start: 201301, end: 20201018
  27. GINKGO [Concomitant]
     Active Substance: GINKGO
     Dates: start: 201701
  28. DIAZEPAM. [Concomitant]
     Active Substance: DIAZEPAM
     Dates: start: 20191008
  29. LENVATINIB [Suspect]
     Active Substance: LENVATINIB
     Indication: NON-SMALL CELL LUNG CANCER METASTATIC
     Route: 048
     Dates: start: 20190717, end: 20201019
  30. PANTOPRAZOLE [Concomitant]
     Active Substance: PANTOPRAZOLE
     Dates: start: 201512, end: 20201018
  31. FOLIC ACID. [Concomitant]
     Active Substance: FOLIC ACID
     Dates: start: 20190715
  32. METOCLOPRAMIDE. [Concomitant]
     Active Substance: METOCLOPRAMIDE
     Dates: start: 20200507

REACTIONS (2)
  - Toxicity to various agents [Recovered/Resolved]
  - Acute kidney injury [Fatal]

NARRATIVE: CASE EVENT DATE: 20201019
